FAERS Safety Report 5071247-9 (Version None)
Quarter: 2006Q3

REPORT INFORMATION
  Report Type: 
  Country: None (occurrence: None)
  Receive Date: 20060804
  Receipt Date: 20060713
  Transmission Date: 20061208
  Serious: Yes (Hospitalization)
  Sender: FDA-Public Use
  Company Number: 2006AP03327

PATIENT
  Age: 23082 Day
  Sex: Male
  Weight: 55.1 kg

DRUGS (16)
  1. IRESSA [Suspect]
     Indication: NON-SMALL CELL LUNG CANCER STAGE IIIB
     Route: 048
     Dates: start: 20060516, end: 20060608
  2. IRESSA [Suspect]
     Indication: LUNG ADENOCARCINOMA STAGE III
     Route: 048
     Dates: start: 20060516, end: 20060608
  3. OPSO [Concomitant]
     Indication: CANCER PAIN
     Route: 048
     Dates: start: 20060516, end: 20060608
  4. MS CONTIN [Concomitant]
     Indication: CANCER PAIN
     Route: 048
     Dates: start: 20060516, end: 20060517
  5. MS CONTIN [Concomitant]
     Route: 048
     Dates: start: 20060518, end: 20060529
  6. LOXONIN [Concomitant]
     Indication: CANCER PAIN
     Route: 048
     Dates: start: 20060516, end: 20060625
  7. CYTOTEC [Concomitant]
     Indication: GASTRIC ULCER
     Route: 048
     Dates: start: 20060516, end: 20060625
  8. THEO-DUR [Concomitant]
     Indication: ASTHMA
     Route: 048
     Dates: start: 20060516, end: 20060625
  9. FLUTIDE [Concomitant]
     Indication: ASTHMA
     Route: 055
     Dates: start: 20060516, end: 20060625
  10. PANTOSIN [Concomitant]
     Indication: CONSTIPATION
     Route: 048
     Dates: start: 20060516, end: 20060625
  11. MAGLAX [Concomitant]
     Indication: CONSTIPATION
     Route: 048
     Dates: start: 20060516, end: 20060625
  12. OXYCODONE HCL [Concomitant]
     Indication: CANCER PAIN
     Route: 048
     Dates: start: 20060529, end: 20060625
  13. PURSENNID [Concomitant]
     Indication: CONSTIPATION
     Route: 048
     Dates: start: 20060531, end: 20060601
  14. NOVAMIN [Concomitant]
     Indication: NAUSEA
     Route: 048
     Dates: start: 20060503, end: 20060625
  15. CISPLATIN [Concomitant]
     Indication: NON-SMALL CELL LUNG CANCER STAGE IIIB
     Dates: start: 20051207, end: 20060405
  16. PACLITAXEL [Concomitant]
     Indication: NON-SMALL CELL LUNG CANCER STAGE IIIB
     Dates: start: 20051207, end: 20060405

REACTIONS (6)
  - CANDIDA PNEUMONIA [None]
  - INTERSTITIAL LUNG DISEASE [None]
  - PLEURAL EFFUSION [None]
  - PNEUMOCYSTIS JIROVECI PNEUMONIA [None]
  - PNEUMONIA [None]
  - RESPIRATORY FAILURE [None]
